FAERS Safety Report 18990182 (Version 9)
Quarter: 2022Q1

REPORT INFORMATION
  Report Type: Report from Study
  Country: JP (occurrence: JP)
  Receive Date: 20210310
  Receipt Date: 20220310
  Transmission Date: 20220423
  Serious: Yes (Life-Threatening, Hospitalization, Other)
  Sender: FDA-Public Use
  Company Number: JP-ALXN-A202102896AA

PATIENT
  Age: 0 Year
  Sex: Female
  Weight: 2.314 kg

DRUGS (6)
  1. STRENSIQ [Suspect]
     Active Substance: ASFOTASE ALFA
     Indication: Hypophosphatasia
     Dosage: 2 MG/KG, TIW
     Route: 058
     Dates: start: 20210224
  2. AMBROXOL HYDROCHLORIDE [Concomitant]
     Active Substance: AMBROXOL HYDROCHLORIDE
     Indication: Hypophosphatasia
     Dosage: 0.8 ML, BID
     Route: 048
     Dates: start: 20210301
  3. CALCIUM GLUCONATE [Concomitant]
     Active Substance: CALCIUM GLUCONATE
     Indication: Hypophosphatasia
     Dosage: 1-15ML/KG/DAY, QID
     Route: 042
     Dates: start: 20210224, end: 20210415
  4. CARBOCYSTEINE [Concomitant]
     Active Substance: CARBOCYSTEINE
     Indication: Hypophosphatasia
     Dosage: 1.5 ML, BID
     Route: 048
     Dates: start: 20210301
  5. INCREMIN                           /00023544/ [Concomitant]
     Indication: Hypophosphatasia
     Dosage: 5 ML, QD
     Route: 048
     Dates: start: 20210301
  6. PANVITAN                           /05664201/ [Concomitant]
     Indication: Hypophosphatasia
     Dosage: 0.25 G, BID
     Route: 048
     Dates: start: 20210301

REACTIONS (10)
  - Hypocalcaemic seizure [Recovering/Resolving]
  - Respiratory failure [Recovering/Resolving]
  - Hydrocephalus [Not Recovered/Not Resolved]
  - Bronchopulmonary dysplasia [Not Recovered/Not Resolved]
  - Pneumonia aspiration [Recovering/Resolving]
  - Pulmonary hypertension [Recovering/Resolving]
  - Hypocalcaemia [Recovering/Resolving]
  - Exophthalmos [Not Recovered/Not Resolved]
  - Device dislocation [Recovering/Resolving]
  - Vomiting [Not Recovered/Not Resolved]

NARRATIVE: CASE EVENT DATE: 20210301
